FAERS Safety Report 10570104 (Version 2)
Quarter: 2016Q3

REPORT INFORMATION
  Report Type: Spontaneous
  Country: CH (occurrence: CH)
  Receive Date: 20141107
  Receipt Date: 20160930
  Transmission Date: 20161109
  Serious: Yes (Other)
  Sender: FDA-Public Use
  Company Number: CH-BAYER-2014-162282

PATIENT
  Sex: Female

DRUGS (1)
  1. BETAFERON [Suspect]
     Active Substance: INTERFERON BETA-1B
     Indication: MULTIPLE SCLEROSIS
     Dosage: 250 ?G, QOD
     Route: 058
     Dates: start: 1995, end: 201605

REACTIONS (13)
  - Urinary incontinence [None]
  - Injection site erythema [None]
  - Thermal burn [None]
  - Multiple sclerosis [None]
  - Memory impairment [None]
  - Muscular weakness [None]
  - Upper limb fracture [None]
  - Paralysis [None]
  - Disturbance in attention [None]
  - Fall [None]
  - Device occlusion [None]
  - Fall [None]
  - Fall [None]

NARRATIVE: CASE EVENT DATE: 20090706
